FAERS Safety Report 5107613-2 (Version None)
Quarter: 2006Q4

REPORT INFORMATION
  Report Type: 
  Country: None (occurrence: None)
  Receive Date: 20060919
  Receipt Date: 20060828
  Transmission Date: 20070319
  Serious: Yes (Other)
  Sender: FDA-Public Use
  Company Number: US-BRISTOL-MYERS SQUIBB COMPANY-13492293

PATIENT
  Age: 59 Year
  Sex: Female

DRUGS (6)
  1. ESTRACE [Suspect]
     Indication: MENOPAUSAL SYMPTOMS
  2. ESTRACE [Suspect]
     Indication: MENOPAUSAL SYMPTOMS
     Route: 067
  3. PREMARIN [Suspect]
     Indication: MENOPAUSAL SYMPTOMS
  4. PREMPRO [Suspect]
     Indication: MENOPAUSAL SYMPTOMS
  5. ESTRATEST [Suspect]
     Indication: MENOPAUSAL SYMPTOMS
  6. CENESTIN [Suspect]
     Indication: MENOPAUSAL SYMPTOMS

REACTIONS (1)
  - BREAST CANCER [None]
